FAERS Safety Report 6271417-8 (Version None)
Quarter: 2009Q3

REPORT INFORMATION
  Report Type: 
  Country: None (occurrence: None)
  Receive Date: 20090717
  Receipt Date: 20090707
  Transmission Date: 20100115
  Serious: Yes (Hospitalization)
  Sender: FDA-Public Use
  Company Number: FR-JNJFOC-20090703047

PATIENT
  Age: 19 Year
  Sex: Female

DRUGS (4)
  1. REMICADE [Suspect]
     Route: 042
  2. REMICADE [Suspect]
     Route: 042
  3. REMICADE [Suspect]
     Indication: CROHN'S DISEASE
     Route: 042
  4. HYDROCORTISONE [Suspect]
     Indication: CROHN'S DISEASE
     Route: 042

REACTIONS (7)
  - ANAPHYLACTIC REACTION [None]
  - ANGIOEDEMA [None]
  - CROHN'S DISEASE [None]
  - DRUG TOXICITY [None]
  - FISTULA [None]
  - INFUSION RELATED REACTION [None]
  - SUICIDE ATTEMPT [None]
